FAERS Safety Report 25488381 (Version 4)
Quarter: 2025Q3

REPORT INFORMATION
  Report Type: Report from Study
  Country: ZA (occurrence: ZA)
  Receive Date: 20250627
  Receipt Date: 20250717
  Transmission Date: 20251021
  Serious: Yes (Hospitalization, Other)
  Sender: NOVARTIS
  Company Number: ZA-002147023-NVSC2025ZA102275

PATIENT
  Age: 54 Year
  Sex: Female

DRUGS (1)
  1. OFATUMUMAB [Suspect]
     Active Substance: OFATUMUMAB
     Indication: Relapsing-remitting multiple sclerosis
     Dosage: 20 MG, QW (FIRST DOSE)
     Route: 058
     Dates: start: 20250623, end: 20250625

REACTIONS (18)
  - Renal impairment [Recovering/Resolving]
  - Hypersensitivity [Not Recovered/Not Resolved]
  - C-reactive protein increased [Unknown]
  - Inflammation [Unknown]
  - Influenza like illness [Recovering/Resolving]
  - Asthenia [Not Recovered/Not Resolved]
  - Influenza [Unknown]
  - Pyrexia [Unknown]
  - Cough [Unknown]
  - Pain [Recovered/Resolved]
  - Nausea [Unknown]
  - Decreased appetite [Unknown]
  - Somnolence [Unknown]
  - Illness [Unknown]
  - Headache [Unknown]
  - Vomiting [Unknown]
  - Myalgia [Unknown]
  - Sneezing [Unknown]

NARRATIVE: CASE EVENT DATE: 20250623
